FAERS Safety Report 10171331 (Version 1)
Quarter: 2014Q2

REPORT INFORMATION
  Report Type: Spontaneous
  Country: US (occurrence: US)
  Receive Date: 20140514
  Receipt Date: 20140514
  Transmission Date: 20141212
  Serious: Yes (Other)
  Sender: FDA-Public Use
  Company Number: US-MALLINCKRODT-T201402187

PATIENT
  Age: 62 Year
  Sex: Male
  Weight: 65.76 kg

DRUGS (1)
  1. OXYCODONE/ACETAMINOPHEN [Suspect]
     Indication: PROCEDURAL PAIN
     Dosage: 5/325 MG, ONE Q4-6 HOURS
     Route: 048
     Dates: start: 20140503, end: 20140506

REACTIONS (2)
  - Palpitations [Recovered/Resolved]
  - Peripheral swelling [Recovered/Resolved]
